FAERS Safety Report 9540840 (Version 1)
Quarter: 2013Q3

REPORT INFORMATION
  Report Type: Spontaneous
  Country: US (occurrence: US)
  Receive Date: 20130920
  Receipt Date: 20130920
  Transmission Date: 20140515
  Serious: No
  Sender: FDA-Public Use
  Company Number: US-BAYER-2013-114220

PATIENT
  Age: 68 Year
  Sex: Female

DRUGS (2)
  1. MAGNEVIST [Suspect]
     Indication: RENAL MASS
     Dosage: UNK UNK, ONCE
     Route: 042
     Dates: start: 20130918, end: 20130918
  2. MAGNEVIST [Suspect]
     Indication: SCAN

REACTIONS (1)
  - Rash [Recovered/Resolved]
